FAERS Safety Report 20016545 (Version 1)
Quarter: 2021Q4

REPORT INFORMATION
  Report Type: Spontaneous
  Country: US (occurrence: None)
  Receive Date: 20211104
  Receipt Date: 20211104
  Transmission Date: 20220303
  Serious: Yes (Hospitalization)
  Sender: FDA-Public Use
  Company Number: None

PATIENT
  Sex: Female

DRUGS (1)
  1. ZEJULA [Suspect]
     Active Substance: NIRAPARIB
     Indication: Ovarian neoplasm
     Dosage: OTHER FREQUENCY : 2 CAPSULES EVERY N;?
     Route: 048
     Dates: start: 20210101

REACTIONS (2)
  - Hospitalisation [None]
  - Malaise [None]
